FAERS Safety Report 8246163-1 (Version None)
Quarter: 2012Q1

REPORT INFORMATION
  Report Type: 
  Country: None (occurrence: None)
  Receive Date: 20120330
  Receipt Date: 20120322
  Transmission Date: 20120608
  Serious: Yes (Life-Threatening, Hospitalization, Disabling)
  Sender: FDA-Public Use
  Company Number: SI-US-EMD SERONO, INC.-7120937

PATIENT
  Sex: Female
  Weight: 50 kg

DRUGS (1)
  1. REBIF [Suspect]
     Indication: PRODUCT USED FOR UNKNOWN INDICATION
     Route: 058
     Dates: start: 20031001, end: 20120224

REACTIONS (1)
  - MALIGNANT GLIOMA [None]
